FAERS Safety Report 12493079 (Version 3)
Quarter: 2022Q4

REPORT INFORMATION
  Report Type: Spontaneous
  Country: US (occurrence: US)
  Receive Date: 20160623
  Receipt Date: 20221012
  Transmission Date: 20230113
  Serious: Yes (Life-Threatening, Hospitalization, Other)
  Sender: FDA-Public Use
  Company Number: US-MLMSERVICE-20160603-0310966-1

PATIENT
  Age: 58 Year
  Sex: Female

DRUGS (2)
  1. EPINEPHRINE [Suspect]
     Active Substance: EPINEPHRINE
     Indication: Anaphylactic reaction
     Dosage: 0.3 MG
     Route: 030
  2. EPINEPHRINE [Suspect]
     Active Substance: EPINEPHRINE
     Dosage: 1 MG
     Route: 042

REACTIONS (2)
  - Off label use [Unknown]
  - Stress cardiomyopathy [Recovering/Resolving]
